FAERS Safety Report 4284198-4 (Version None)
Quarter: 2004Q1

REPORT INFORMATION
  Report Type: 
  Country: None (occurrence: None)
  Receive Date: 20040130
  Receipt Date: 20040127
  Transmission Date: 20041129
  Serious: Yes (Disabling)
  Sender: FDA-Public Use
  Company Number: 200410291GDS

PATIENT
  Age: 78 Year
  Sex: Male

DRUGS (5)
  1. CIPROFLOXACIN [Suspect]
     Indication: OSTEOMYELITIS
     Dosage: 750 MG, BID, ORAL
     Route: 048
  2. METOPROLOL TARTRATE [Concomitant]
  3. THYROXINE SODIUM [Concomitant]
  4. FRUSEMIDE [Concomitant]
  5. IRBESARTAN [Concomitant]

REACTIONS (3)
  - GINGIVAL PAIN [None]
  - MYALGIA [None]
  - PARALYSIS [None]
